FAERS Safety Report 8711495 (Version 6)
Quarter: 2018Q1

REPORT INFORMATION
  Report Type: Spontaneous
  Country: CA (occurrence: CA)
  Receive Date: 20120807
  Receipt Date: 20180327
  Transmission Date: 20180509
  Serious: Yes (Life-Threatening, Hospitalization)
  Sender: FDA-Public Use
  Company Number: CA-JNJFOC-20120801229

PATIENT
  Age: 8 Day
  Sex: Female
  Weight: 2.9 kg

DRUGS (7)
  1. EXTRA STRENGTH ACETAMINOPHEN [Suspect]
     Active Substance: ACETAMINOPHEN
     Indication: AFTERBIRTH PAIN
     Route: 063
  2. TYLENOL WITH CODEINE [Suspect]
     Active Substance: ACETAMINOPHEN\CODEINE PHOSPHATE
     Indication: AFTERBIRTH PAIN
     Route: 063
  3. TYLENOL WITH CODEINE [Suspect]
     Active Substance: ACETAMINOPHEN\CODEINE PHOSPHATE
     Indication: COUGH
     Route: 063
  4. TYLENOL WITH CODEINE [Suspect]
     Active Substance: ACETAMINOPHEN\CODEINE PHOSPHATE
     Indication: AFTERBIRTH PAIN
     Route: 063
  5. IBUPROFEN. [Suspect]
     Active Substance: IBUPROFEN
     Indication: AFTERBIRTH PAIN
     Route: 063
  6. TYLENOL WITH CODEINE [Suspect]
     Active Substance: ACETAMINOPHEN\CODEINE PHOSPHATE
     Indication: COUGH
     Route: 063
  7. OXYCODONE [Suspect]
     Active Substance: OXYCODONE
     Indication: AFTERBIRTH PAIN
     Dosage: EVERY 4 HOURSFOR 2 DAYS, AND EVERY 6 HOURS FOR A SUBSEQUENT 2 DAYS
     Route: 063

REACTIONS (3)
  - Exposure via breast milk [Recovering/Resolving]
  - Respiratory arrest [Recovering/Resolving]
  - Lethargy [Unknown]
